FAERS Safety Report 10085180 (Version 2)
Quarter: 2014Q2

REPORT INFORMATION
  Report Type: Spontaneous
  Country: US (occurrence: US)
  Receive Date: 20140417
  Receipt Date: 20140626
  Transmission Date: 20141212
  Serious: Yes (Other)
  Sender: FDA-Public Use
  Company Number: US-TEVA-476322USA

PATIENT
  Age: 36 Year
  Sex: Female
  Weight: 60.38 kg

DRUGS (3)
  1. PARAGARD 380A [Suspect]
     Indication: CONTRACEPTION
     Route: 015
     Dates: end: 20140408
  2. ASPIRIN [Concomitant]
     Indication: THROMBOCYTOSIS
  3. HYDROXYUREA [Concomitant]
     Indication: THROMBOCYTOSIS

REACTIONS (6)
  - Embedded device [Not Recovered/Not Resolved]
  - Pelvic infection [Not Recovered/Not Resolved]
  - Device breakage [Not Recovered/Not Resolved]
  - Pelvic pain [Not Recovered/Not Resolved]
  - Pain [Unknown]
  - Muscle spasms [Unknown]
